FAERS Safety Report 5656591-6 (Version None)
Quarter: 2008Q1

REPORT INFORMATION
  Report Type: 
  Country: None (occurrence: None)
  Receive Date: 20080219
  Receipt Date: 20071220
  Transmission Date: 20080703
  Serious: No
  Sender: FDA-Public Use
  Company Number: WAES 0712USA08435

PATIENT
  Age: 74 Year
  Sex: Female

DRUGS (8)
  1. JANUVIA [Suspect]
     Indication: DIABETES MELLITUS
     Dosage: 100 MG/DAILY/PO
     Route: 048
     Dates: start: 20071218
  2. ACTOS [Concomitant]
  3. CITRACAL CAPLETS + D [Concomitant]
  4. CRESTOR [Concomitant]
  5. MICARDIS [Concomitant]
  6. ZETIA [Concomitant]
  7. ASPIRIN [Concomitant]
  8. MULTI-VITAMINS [Concomitant]

REACTIONS (3)
  - DIZZINESS POSTURAL [None]
  - HEADACHE [None]
  - MALAISE [None]
